FAERS Safety Report 10192960 (Version 2)
Quarter: 2015Q4

REPORT INFORMATION
  Report Type: Report from Study
  Country: MX (occurrence: MX)
  Receive Date: 20140523
  Receipt Date: 20151231
  Transmission Date: 20160304
  Serious: Yes (Death)
  Sender: FDA-Public Use
  Company Number: PHHY2013MX119238

PATIENT
  Sex: Female

DRUGS (2)
  1. ZOMETA [Suspect]
     Active Substance: ZOLEDRONIC ACID
     Indication: OSTEOPOROSIS
     Dosage: 4 MG, ANNUALLY
     Route: 042
     Dates: start: 201009
  2. PROZAC [Concomitant]
     Active Substance: FLUOXETINE HYDROCHLORIDE
     Indication: SLEEP DISORDER
     Route: 065

REACTIONS (5)
  - Metastases to lung [Fatal]
  - Breast cancer [Fatal]
  - Metastases to liver [Fatal]
  - Metastases to pleura [Fatal]
  - Product use issue [Unknown]
